FAERS Safety Report 12685906 (Version 1)
Quarter: 2016Q3

REPORT INFORMATION
  Report Type: Spontaneous
  Country: US (occurrence: US)
  Receive Date: 20160825
  Receipt Date: 20160825
  Transmission Date: 20161109
  Serious: No
  Sender: FDA-Public Use
  Company Number: US-FRI-1000082871

PATIENT
  Age: 29 Year
  Sex: Female
  Weight: 63.95 kg

DRUGS (10)
  1. ALBUTEROL. [Concomitant]
     Active Substance: ALBUTEROL
     Indication: WHEEZING
     Dosage: 90 MCG/ACT 1-2 PUFFS Q4-6H WHEEZES AND SOB
  2. ALBUTEROL. [Concomitant]
     Active Substance: ALBUTEROL
     Indication: DYSPNOEA
  3. RELION [Concomitant]
     Dosage: 100 UNIT/ML (20 UNITS AT BREAKFAST AND 12 UNITS AT SUPPER)
  4. NOVOLOG [Concomitant]
     Active Substance: INSULIN ASPART
  5. ZOFRAN [Concomitant]
     Active Substance: ONDANSETRON HYDROCHLORIDE
     Indication: NAUSEA
     Dosage: 24MG
     Route: 048
  6. LEXAPRO [Suspect]
     Active Substance: ESCITALOPRAM OXALATE
     Dosage: 10MG
     Route: 048
  7. RELION [Concomitant]
  8. NEURONTIN [Concomitant]
     Active Substance: GABAPENTIN
     Dosage: 600MG
     Route: 048
  9. ZOFRAN [Concomitant]
     Active Substance: ONDANSETRON HYDROCHLORIDE
     Indication: VOMITING
  10. ULTRAM [Concomitant]
     Active Substance: TRAMADOL HYDROCHLORIDE
     Dosage: 200MG
     Route: 048

REACTIONS (6)
  - Neck pain [Unknown]
  - Feeling hot [Unknown]
  - Ear pain [Unknown]
  - Pigmentation disorder [Unknown]
  - Pain in jaw [Unknown]
  - Tenderness [Unknown]

NARRATIVE: CASE EVENT DATE: 20111105
